FAERS Safety Report 10547751 (Version 1)
Quarter: 2014Q4

REPORT INFORMATION
  Report Type: Spontaneous
  Country: US (occurrence: None)
  Receive Date: 20141027
  Receipt Date: 20141027
  Transmission Date: 20150529
  Serious: Yes (Death)
  Sender: FDA-Public Use
  Company Number: None

PATIENT
  Age: 65 Year
  Sex: Female

DRUGS (1)
  1. XARELTO [Suspect]
     Active Substance: RIVAROXABAN
     Indication: PULMONARY EMBOLISM
     Route: 048
     Dates: start: 20140820, end: 20140831

REACTIONS (5)
  - Oesophageal haemorrhage [None]
  - Gastrointestinal haemorrhage [None]
  - Dyspnoea [None]
  - Gastric haemorrhage [None]
  - Hypotension [None]

NARRATIVE: CASE EVENT DATE: 20140831
